FAERS Safety Report 6775080-9 (Version None)
Quarter: 2010Q2

REPORT INFORMATION
  Report Type: 
  Country: None (occurrence: None)
  Receive Date: 20100617
  Receipt Date: 20100609
  Transmission Date: 20101027
  Serious: Yes (Life-Threatening)
  Sender: FDA-Public Use
  Company Number: B0659733A

PATIENT
  Age: 66 Year
  Sex: Male

DRUGS (2)
  1. ARIXTRA [Suspect]
     Indication: ATRIAL FIBRILLATION
     Dosage: 7.5MG PER DAY
     Route: 058
     Dates: start: 20100119, end: 20100123
  2. KARDEGIC [Concomitant]
     Indication: ATRIAL FIBRILLATION
     Route: 065

REACTIONS (3)
  - ABDOMINAL PAIN [None]
  - PERITONEAL HAEMORRHAGE [None]
  - RENAL FAILURE ACUTE [None]
